FAERS Safety Report 9016077 (Version 1)
Quarter: 2013Q1

REPORT INFORMATION
  Report Type: Spontaneous
  Country: GB (occurrence: GB)
  Receive Date: 20130116
  Receipt Date: 20130116
  Transmission Date: 20140127
  Serious: Yes (Hospitalization)
  Sender: FDA-Public Use
  Company Number: GB-009507513-0510GBR00020

PATIENT
  Age: 68 Year
  Sex: Female

DRUGS (5)
  1. SINGULAIR [Suspect]
     Indication: ASTHMA
     Dosage: 10 MG, QD
     Route: 048
  2. MK-9350 [Suspect]
     Indication: ASTHMA
     Dosage: 20 MG, QD
  3. THEOPHYLLINE [Suspect]
  4. MK-9378 [Suspect]
  5. FLIXOTIDE [Suspect]
     Route: 065

REACTIONS (5)
  - Peritonitis bacterial [Recovered/Resolved]
  - White blood cell count increased [Unknown]
  - Pyrexia [Unknown]
  - Abdominal tenderness [Unknown]
  - Abdominal pain [Unknown]
